FAERS Safety Report 4562703-8 (Version None)
Quarter: 2005Q1

REPORT INFORMATION
  Report Type: 
  Country: None (occurrence: None)
  Receive Date: 20050124
  Receipt Date: 20050104
  Transmission Date: 20050727
  Serious: Yes (Hospitalization)
  Sender: FDA-Public Use
  Company Number: 200500189

PATIENT
  Age: 64 Year
  Sex: Male

DRUGS (4)
  1. LUMIGAN [Suspect]
     Indication: GLAUCOMA
     Dosage: 1 DROP QHS EYE
     Route: 047
     Dates: start: 20040601, end: 20050104
  2. XALATAN [Suspect]
     Indication: GLAUCOMA
     Dates: start: 19990601, end: 20040601
  3. XALATAN [Suspect]
     Dates: start: 20050104
  4. PROSCAR [Concomitant]

REACTIONS (4)
  - NAUSEA [None]
  - SYNCOPE [None]
  - TINNITUS [None]
  - VERTIGO [None]
